FAERS Safety Report 5720043-5 (Version None)
Quarter: 2008Q2

REPORT INFORMATION
  Report Type: 
  Country: None (occurrence: None)
  Receive Date: 20080424
  Receipt Date: 20080409
  Transmission Date: 20081010
  Serious: Yes (Hospitalization)
  Sender: FDA-Public Use
  Company Number: 08-000381

PATIENT
  Age: 13 Year
  Sex: Female
  Weight: 61.2 kg

DRUGS (2)
  1. LOESTRIN 24 FE [Suspect]
     Indication: MENSTRUATION IRREGULAR
     Dosage: 20/1000 UG, QD, ORAL
     Route: 048
     Dates: start: 20070101, end: 20080304
  2. LOESTRIN 24 FE [Suspect]
     Indication: OVARIAN CYST
     Dosage: 20/1000 UG, QD, ORAL
     Route: 048
     Dates: start: 20070101, end: 20080304

REACTIONS (9)
  - ABDOMINAL PAIN [None]
  - CHEST DISCOMFORT [None]
  - DRUG INEFFECTIVE [None]
  - ERUCTATION [None]
  - FLATULENCE [None]
  - GASTRITIS [None]
  - GASTROOESOPHAGEAL REFLUX DISEASE [None]
  - MUSCLE SPASMS [None]
  - OVARIAN CYST [None]
